FAERS Safety Report 12320584 (Version 3)
Quarter: 2016Q2

REPORT INFORMATION
  Report Type: Report from Study
  Country: US (occurrence: US)
  Receive Date: 20160429
  Receipt Date: 20160621
  Transmission Date: 20160815
  Serious: No
  Sender: FDA-Public Use
  Company Number: US-AMGEN-USASL2016051109

PATIENT
  Age: 53 Year
  Sex: Female

DRUGS (1)
  1. ENBREL [Suspect]
     Active Substance: ETANERCEPT
     Indication: RHEUMATOID ARTHRITIS
     Dosage: 50 MG, QWK
     Route: 065
     Dates: start: 20160330, end: 2016

REACTIONS (10)
  - Rash erythematous [Not Recovered/Not Resolved]
  - Injection site swelling [Not Recovered/Not Resolved]
  - Rash pruritic [Not Recovered/Not Resolved]
  - Injection site reaction [Not Recovered/Not Resolved]
  - Dyspnoea [Unknown]
  - Wheezing [Unknown]
  - Weight increased [Unknown]
  - Gastroenteritis viral [Unknown]
  - Adverse drug reaction [Unknown]
  - Injection site erythema [Not Recovered/Not Resolved]

NARRATIVE: CASE EVENT DATE: 2016
